FAERS Safety Report 19612325 (Version 1)
Quarter: 2021Q3

REPORT INFORMATION
  Report Type: Spontaneous
  Country: IT (occurrence: IT)
  Receive Date: 20210727
  Receipt Date: 20210727
  Transmission Date: 20211014
  Serious: Yes (Other)
  Sender: FDA-Public Use
  Company Number: IT-AUROBINDO-AUR-APL-2021-031991

PATIENT
  Age: 70 Year
  Sex: Female

DRUGS (4)
  1. DOCETAXEL. [Suspect]
     Active Substance: DOCETAXEL
     Dosage: UNK (DAY 1 EVERY 21 DAYS; 6 CYCLES)
     Route: 065
     Dates: start: 201704
  2. DOCETAXEL. [Suspect]
     Active Substance: DOCETAXEL
     Indication: INVASIVE DUCTAL BREAST CARCINOMA
     Dosage: UNK
     Route: 065
  3. PERTUZUMAB. [Concomitant]
     Active Substance: PERTUZUMAB
     Indication: INVASIVE DUCTAL BREAST CARCINOMA
     Dosage: 420 MG, DAY 1 EVERY 21 DAYS
     Route: 065
     Dates: start: 201704, end: 201906
  4. TRASTUZUMAB. [Concomitant]
     Active Substance: TRASTUZUMAB
     Indication: INVASIVE DUCTAL BREAST CARCINOMA
     Dosage: 6 MILLIGRAM/KILOGRAM (DAY 1 EVERY 21 DAYS)
     Route: 065
     Dates: start: 201704, end: 201906

REACTIONS (6)
  - Asthenia [Unknown]
  - Headache [Recovering/Resolving]
  - Disturbance in attention [Unknown]
  - Central nervous system lesion [Recovering/Resolving]
  - Diarrhoea [Unknown]
  - Hepatic lesion [Recovering/Resolving]
